FAERS Safety Report 24728495 (Version 2)
Quarter: 2024Q4

REPORT INFORMATION
  Report Type: Report from Study
  Country: AU (occurrence: AU)
  Receive Date: 20241212
  Receipt Date: 20241220
  Transmission Date: 20250115
  Serious: Yes (Other)
  Sender: ABBVIE
  Company Number: AU-ABBVIE-6040347

PATIENT
  Age: 19 Year
  Sex: Female
  Weight: 40 kg

DRUGS (1)
  1. RINVOQ [Suspect]
     Active Substance: UPADACITINIB
     Indication: Crohn^s disease
     Dosage: INDUCTION DOSE
     Route: 048
     Dates: start: 2024

REACTIONS (2)
  - Ileostomy [Unknown]
  - Product residue present [Unknown]

NARRATIVE: CASE EVENT DATE: 20240101
